FAERS Safety Report 4338964-7 (Version None)
Quarter: 2004Q1

REPORT INFORMATION
  Report Type: 
  Country: None (occurrence: None)
  Receive Date: 20040329
  Receipt Date: 20040204
  Transmission Date: 20041129
  Serious: No
  Sender: FDA-Public Use
  Company Number: USA040258539

PATIENT
  Age: 27 Year
  Sex: Male
  Weight: 86 kg

DRUGS (1)
  1. STRATTERA [Suspect]
     Indication: ATTENTION DEFICIT/HYPERACTIVITY DISORDER
     Dosage: 60 MG/2 DAY
     Route: 048
     Dates: start: 20031101

REACTIONS (7)
  - DYSURIA [None]
  - EJACULATION DISORDER [None]
  - LIBIDO DECREASED [None]
  - PRESCRIBED OVERDOSE [None]
  - RESIDUAL URINE VOLUME [None]
  - SEMEN VISCOSITY INCREASED [None]
  - SLEEP DISORDER [None]
